FAERS Safety Report 9218872 (Version 1)
Quarter: 2013Q2

REPORT INFORMATION
  Report Type: Spontaneous
  Country: US (occurrence: None)
  Receive Date: 20130405
  Receipt Date: 20130405
  Transmission Date: 20140414
  Serious: Yes (Other)
  Sender: FDA-Public Use
  Company Number: None

PATIENT
  Age: 36 Year
  Sex: Male
  Weight: 81.65 kg

DRUGS (1)
  1. CITALOPRAM 10 MG [Suspect]
     Indication: ANXIETY
     Route: 048
     Dates: start: 20130205, end: 20130208

REACTIONS (11)
  - Mania [None]
  - Insomnia [None]
  - Euphoric mood [None]
  - Depression [None]
  - Nightmare [None]
  - Delusion [None]
  - Psychotic disorder [None]
  - Panic attack [None]
  - Bipolar disorder [None]
  - Suicidal ideation [None]
  - Impaired work ability [None]
